FAERS Safety Report 13671967 (Version 3)
Quarter: 2017Q4

REPORT INFORMATION
  Report Type: Spontaneous
  Country: GB (occurrence: GB)
  Receive Date: 20170620
  Receipt Date: 20171012
  Transmission Date: 20180320
  Serious: Yes (Other)
  Sender: FDA-Public Use
  Company Number: GB-PFM-2017-04974

PATIENT

DRUGS (3)
  1. ABILIFY [Concomitant]
     Active Substance: ARIPIPRAZOLE
     Indication: PRODUCT USED FOR UNKNOWN INDICATION
     Dosage: UNK UNK, UNKNOWN
     Route: 065
  2. PROPRANOLOL [Suspect]
     Active Substance: PROPRANOLOL HYDROCHLORIDE
     Indication: OFF LABEL USE
  3. PROPRANOLOL [Suspect]
     Active Substance: PROPRANOLOL HYDROCHLORIDE
     Indication: CHEST DISCOMFORT
     Dosage: 10 MG, UNKNOWN
     Route: 065

REACTIONS (5)
  - Drug administered to patient of inappropriate age [Unknown]
  - Blood potassium decreased [Unknown]
  - Off label use [Unknown]
  - Treatment noncompliance [Unknown]
  - Product use in unapproved indication [Unknown]
